FAERS Safety Report 5289087-4 (Version None)
Quarter: 2007Q1

REPORT INFORMATION
  Report Type: 
  Country: None (occurrence: None)
  Receive Date: 20070122
  Receipt Date: 20060222
  Transmission Date: 20070707
  Serious: Yes (Other)
  Sender: FDA-Public Use
  Company Number: PHEH2006US02461

PATIENT
  Age: 28 Year
  Sex: Female

DRUGS (7)
  1. SANDOSTATIN LAR [Suspect]
     Indication: DIARRHOEA
     Dosage: 20 MG, QMO, INJECTION NOS
     Dates: start: 20051005, end: 20060222
  2. DEPAKOTE [Concomitant]
  3. PREVACID [Concomitant]
  4. VICODIN [Concomitant]
  5. COMBIVENT /GFR/ (IPRATROPIUM BROMIDE, SALBUTAMOL SULFATE) [Concomitant]
  6. LOMOTIL [Concomitant]
  7. QUESTRAN [Concomitant]

REACTIONS (1)
  - HYPOGLYCAEMIA [None]
